FAERS Safety Report 11843718 (Version 3)
Quarter: 2025Q2

REPORT INFORMATION
  Report Type: Report from Study
  Country: US (occurrence: US)
  Receive Date: 20151217
  Receipt Date: 20250516
  Transmission Date: 20250716
  Serious: Yes (Disabling, Other)
  Sender: AMGEN
  Company Number: US-AMGEN-USASL2015133998

PATIENT
  Age: 58 Year
  Sex: Female

DRUGS (1)
  1. ENBREL [Suspect]
     Active Substance: ETANERCEPT
     Indication: Psoriatic arthropathy
     Route: 065
     Dates: start: 20150113

REACTIONS (3)
  - Disability [Unknown]
  - Diabetes mellitus [Unknown]
  - Memory impairment [Unknown]
